FAERS Safety Report 4696724-1 (Version None)
Quarter: 2005Q2

REPORT INFORMATION
  Report Type: 
  Country: None (occurrence: None)
  Receive Date: 20050620
  Receipt Date: 20050606
  Transmission Date: 20051028
  Serious: Yes (Other)
  Sender: FDA-Public Use
  Company Number: 2005088728

PATIENT
  Age: 48 Year
  Sex: Female

DRUGS (2)
  1. BENADRYL [Suspect]
     Indication: PRURITUS
     Dosage: 4 TABS IN 12 HRS; ORAL
     Route: 048
     Dates: start: 20050601
  2. DRUG, UNSPECIFIED (DRUG, UNSPECIFIED) [Suspect]
     Dosage: 45 MG, TOPICAL
     Route: 061
     Dates: start: 20050603

REACTIONS (6)
  - ANXIETY [None]
  - HYPERSENSITIVITY [None]
  - HYPERTENSION [None]
  - LOSS OF CONSCIOUSNESS [None]
  - MUSCLE TWITCHING [None]
  - STARING [None]
